FAERS Safety Report 25950485 (Version 1)
Quarter: 2025Q4

REPORT INFORMATION
  Report Type: Spontaneous
  Country: EU (occurrence: EU)
  Receive Date: 20251023
  Receipt Date: 20251023
  Transmission Date: 20260117
  Serious: Yes (Hospitalization)
  Sender: ABBVIE
  Company Number: None

PATIENT
  Age: 62 Year
  Sex: Male

DRUGS (3)
  1. NORVIR [Interacting]
     Active Substance: RITONAVIR
     Indication: HIV infection
     Dosage: 100MG
     Route: 048
  2. VERAPAMIL HYDROCHLORIDE [Concomitant]
     Active Substance: VERAPAMIL HYDROCHLORIDE
     Indication: Arrhythmia
     Dosage: 1/2 TABLET IN THE MORNING OF 240 MG ER
     Route: 048
  3. FLECAINIDE [Interacting]
     Active Substance: FLECAINIDE
     Indication: Arrhythmia
     Route: 048
     Dates: start: 202407

REACTIONS (4)
  - Atrial fibrillation [Recovering/Resolving]
  - Asthenia [Recovering/Resolving]
  - Malaise [Recovering/Resolving]
  - Tinnitus [Recovering/Resolving]

NARRATIVE: CASE EVENT DATE: 20250911
